FAERS Safety Report 15112993 (Version 3)
Quarter: 2018Q3

REPORT INFORMATION
  Report Type: Report from Study
  Country: None (occurrence: BE)
  Receive Date: 20180706
  Receipt Date: 20180917
  Transmission Date: 20181010
  Serious: Yes (Other)
  Sender: FDA-Public Use
  Company Number: BE-ABBVIE-18K-013-2400610-00

PATIENT
  Age: 82 Year
  Sex: Female

DRUGS (14)
  1. DUODOPA [Suspect]
     Active Substance: CARBIDOPA\LEVODOPA
     Dosage: MD: 5ML, CD: 3.1ML/H FOR 16 HRS, ED: 2.5ML
     Route: 050
     Dates: start: 20180911
  2. STILNOCT [Concomitant]
     Active Substance: ZOLPIDEM TARTRATE
     Indication: PRODUCT USED FOR UNKNOWN INDICATION
  3. DUODOPA [Suspect]
     Active Substance: CARBIDOPA\LEVODOPA
     Dosage: MD: 5ML, CD: 3.1ML/H FOR 16 HRS, ED: 2.5ML
     Route: 050
     Dates: start: 201808, end: 201808
  4. DUODOPA [Suspect]
     Active Substance: CARBIDOPA\LEVODOPA
     Dosage: MD: 5ML, CD: 3.3ML/H FOR 16 HRS, ED: 2.5ML
     Route: 050
     Dates: start: 201808, end: 20180911
  5. PROLOPA [Concomitant]
     Active Substance: BENSERAZIDE\LEVODOPA
     Indication: PRODUCT USED FOR UNKNOWN INDICATION
     Dosage: WHEN NEEDED DURING THE NIGHT
     Route: 065
     Dates: start: 20180911
  6. DUODOPA [Suspect]
     Active Substance: CARBIDOPA\LEVODOPA
     Dosage: MD=5ML??CD=3ML/HR DURING 16HRS ??ED=2.5ML
     Route: 050
     Dates: start: 20180625, end: 20180629
  7. DUODOPA [Suspect]
     Active Substance: CARBIDOPA\LEVODOPA
     Indication: PARKINSON^S DISEASE
     Dosage: MD=5.5ML CD=1.9ML/HR DURING 16HRS ED=1ML
     Route: 050
     Dates: start: 20170328, end: 20170331
  8. DUODOPA [Suspect]
     Active Substance: CARBIDOPA\LEVODOPA
     Dosage: MD=5ML?CD=3.2ML/HR DURING 16HRS?ED=2.5ML
     Route: 050
     Dates: start: 20180629, end: 20180703
  9. ELIQUIS [Concomitant]
     Active Substance: APIXABAN
     Indication: ANTICOAGULANT THERAPY
  10. DUODOPA [Suspect]
     Active Substance: CARBIDOPA\LEVODOPA
     Dosage: DOSES CONTINUOUSLY MONITORED AND ADAPTED
     Route: 050
     Dates: start: 20170331, end: 20180525
  11. DUODOPA [Suspect]
     Active Substance: CARBIDOPA\LEVODOPA
     Route: 050
     Dates: start: 20180703, end: 20180705
  12. DUODOPA [Suspect]
     Active Substance: CARBIDOPA\LEVODOPA
     Dosage: MD: 5ML; CD: 2.8ML/H FOR 16 HRS; ED 2.5ML
     Route: 050
     Dates: start: 20180705, end: 201808
  13. DUODOPA [Suspect]
     Active Substance: CARBIDOPA\LEVODOPA
     Dosage: MD=5ML??CD=2.8ML/HR DURING 16HRS ??ED=2.5ML
     Route: 050
     Dates: start: 20180525, end: 20180625
  14. L?THYROXINE [Concomitant]
     Active Substance: LEVOTHYROXINE
     Indication: PRODUCT USED FOR UNKNOWN INDICATION

REACTIONS (6)
  - Stress [Unknown]
  - Cardiac pacemaker insertion [Unknown]
  - On and off phenomenon [Not Recovered/Not Resolved]
  - Unevaluable event [Not Recovered/Not Resolved]
  - Therapeutic response shortened [Unknown]
  - Dyskinesia [Not Recovered/Not Resolved]

NARRATIVE: CASE EVENT DATE: 20180702
